FAERS Safety Report 22126452 (Version 4)
Quarter: 2023Q2

REPORT INFORMATION
  Report Type: Report from Study
  Country: CN (occurrence: CN)
  Receive Date: 20230322
  Receipt Date: 20230426
  Transmission Date: 20230722
  Serious: Yes (Hospitalization)
  Sender: FDA-Public Use
  Company Number: CN-JNJFOC-20230120336

PATIENT
  Age: 56 Year
  Sex: Male
  Weight: 80.5 kg

DRUGS (7)
  1. TECLISTAMAB [Suspect]
     Active Substance: TECLISTAMAB
     Indication: Plasma cell myeloma refractory
     Route: 058
     Dates: start: 20221026, end: 20221029
  2. TECLISTAMAB [Suspect]
     Active Substance: TECLISTAMAB
     Dosage: MOST RECENT DOSE WAS RECEIVED ON 22-DEC-2022
     Route: 058
     Dates: start: 20221103
  3. DARATUMUMAB [Suspect]
     Active Substance: DARATUMUMAB
     Indication: Plasma cell myeloma refractory
     Route: 058
     Dates: start: 20221026
  4. METHYLCOBALAMIN [Concomitant]
     Active Substance: METHYLCOBALAMIN
     Indication: Peripheral sensory neuropathy
     Route: 048
     Dates: start: 20200101
  5. CEFTRIAXONE SODIUM [Concomitant]
     Active Substance: CEFTRIAXONE SODIUM
     Indication: Upper respiratory tract infection
     Route: 042
     Dates: start: 20221222, end: 20221222
  6. HYDROTALCITE [Concomitant]
     Active Substance: HYDROTALCITE
     Indication: Gastrointestinal disorder therapy
     Route: 048
     Dates: start: 20230322, end: 20230327
  7. ESTAZOLAM [Concomitant]
     Active Substance: ESTAZOLAM
     Indication: Sleep disorder therapy
     Route: 048
     Dates: start: 20230326, end: 20230328

REACTIONS (1)
  - COVID-19 pneumonia [Recovering/Resolving]

NARRATIVE: CASE EVENT DATE: 20230105
